FAERS Safety Report 11844229 (Version 1)
Quarter: 2015Q4

REPORT INFORMATION
  Report Type: Spontaneous
  Country: US (occurrence: None)
  Receive Date: 20151216
  Receipt Date: 20151216
  Transmission Date: 20160305
  Serious: No
  Sender: FDA-Public Use
  Company Number: None

PATIENT
  Age: 45 Year
  Sex: Female

DRUGS (1)
  1. BOTOX [Suspect]
     Active Substance: ONABOTULINUMTOXINA
     Indication: RADICULOPATHY
     Dosage: Q3M
     Route: 028
     Dates: start: 20151106, end: 20151106

REACTIONS (7)
  - Hyperhidrosis [None]
  - Confusional state [None]
  - Influenza like illness [None]
  - Vomiting [None]
  - Nausea [None]
  - Headache [None]
  - Pyrexia [None]

NARRATIVE: CASE EVENT DATE: 20151106
